FAERS Safety Report 26148227 (Version 1)
Quarter: 2025Q4

REPORT INFORMATION
  Report Type: Spontaneous
  Country: EU (occurrence: EU)
  Receive Date: 20251212
  Receipt Date: 20251212
  Transmission Date: 20260117
  Serious: Yes (Hospitalization, Other)
  Sender: TEVA
  Company Number: EU-TEVA-VS-3400638

PATIENT
  Age: 48 Year
  Sex: Male

DRUGS (3)
  1. MYCOPHENOLATE MOFETIL [Suspect]
     Active Substance: MYCOPHENOLATE MOFETIL
     Indication: Product used for unknown indication
     Route: 065
  2. IMIPENEM [Concomitant]
     Active Substance: IMIPENEM
     Indication: Nocardiosis
     Route: 042
  3. COTRIMOXAZOLE [Suspect]
     Active Substance: SULFAMETHOXAZOLE\TRIMETHOPRIM
     Indication: Nocardiosis
     Route: 042

REACTIONS (3)
  - Cytomegalovirus infection reactivation [Unknown]
  - Giardiasis [Unknown]
  - Cytopenia [Unknown]
